FAERS Safety Report 10869009 (Version 4)
Quarter: 2015Q2

REPORT INFORMATION
  Report Type: Spontaneous
  Country: US (occurrence: US)
  Receive Date: 20150225
  Receipt Date: 20150506
  Transmission Date: 20150821
  Serious: Yes (Other)
  Sender: FDA-Public Use
  Company Number: US-TEVA-542432USA

PATIENT
  Sex: Female
  Weight: 67 kg

DRUGS (13)
  1. LISINOPRIL. [Suspect]
     Active Substance: LISINOPRIL
     Indication: PRODUCT USED FOR UNKNOWN INDICATION
     Dosage: UNKNOWN
     Route: 065
  2. AMLODIPINE [Concomitant]
     Active Substance: AMLODIPINE BESYLATE
     Indication: HYPERTENSION
     Route: 048
  3. EVISTA [Concomitant]
     Active Substance: RALOXIFENE HYDROCHLORIDE
     Indication: OSTEOPOROSIS
     Dosage: 60 MILLIGRAM DAILY;
  4. ATORVASTATIN [Concomitant]
     Active Substance: ATORVASTATIN
     Indication: BLOOD CHOLESTEROL INCREASED
     Dosage: 10 MILLIGRAM DAILY;
  5. HYDROCHLOROTHIAZIDE W/LOSARTAN [Suspect]
     Active Substance: HYDROCHLOROTHIAZIDE\LOSARTAN
     Dosage: 50MG/12.5MG
     Route: 065
     Dates: start: 2011
  6. CELEBREX [Suspect]
     Active Substance: CELECOXIB
     Indication: ARTHRITIS
     Dosage: 200 MILLIGRAM DAILY;
     Route: 048
  7. FORTEO SHOTS [Concomitant]
     Indication: OSTEOPOROSIS
     Dates: end: 2007
  8. OSCAL [Concomitant]
     Active Substance: CALCIUM CARBONATE
  9. VITAMIN D [Concomitant]
     Active Substance: CHOLECALCIFEROL
     Dosage: 2000 UNITS
  10. BENICAR [Suspect]
     Active Substance: OLMESARTAN MEDOXOMIL
     Route: 065
  11. I-CAPS [Concomitant]
     Indication: MACULAR DEGENERATION
  12. LEVOTHYROXINE [Concomitant]
     Active Substance: LEVOTHYROXINE
     Indication: THYROID DISORDER
     Dosage: 100 MICROGRAM DAILY;
  13. HYZAAR [Concomitant]
     Active Substance: HYDROCHLOROTHIAZIDE\LOSARTAN POTASSIUM

REACTIONS (16)
  - Nerve compression [Unknown]
  - Mobility decreased [Unknown]
  - Pain [Unknown]
  - Alopecia [Unknown]
  - Drug ineffective [Not Recovered/Not Resolved]
  - Hypoaesthesia [Unknown]
  - Back pain [Unknown]
  - Cough [Unknown]
  - Pain in extremity [Unknown]
  - Hypertension [Unknown]
  - Loss of consciousness [Unknown]
  - Carpal tunnel syndrome [Unknown]
  - Drug resistance [Unknown]
  - Arthritis [Unknown]
  - Intervertebral disc degeneration [Unknown]
  - Syncope [Unknown]

NARRATIVE: CASE EVENT DATE: 2012
